FAERS Safety Report 21066210 (Version 1)
Quarter: 2022Q3

REPORT INFORMATION
  Report Type: Spontaneous
  Country: US (occurrence: US)
  Receive Date: 20220711
  Receipt Date: 20220711
  Transmission Date: 20221027
  Serious: No
  Sender: FDA-Public Use
  Company Number: US-INTRA-CELLULAR THERAPIES, INC.-2022ICT00472

PATIENT
  Sex: Female

DRUGS (3)
  1. CAPLYTA [Suspect]
     Active Substance: LUMATEPERONE
     Indication: Bipolar disorder
     Dosage: UNK
     Dates: start: 20220421
  2. CAPLYTA [Suspect]
     Active Substance: LUMATEPERONE
     Indication: Intrusive thoughts
  3. DEPAKOTE [Concomitant]
     Active Substance: DIVALPROEX SODIUM

REACTIONS (2)
  - Hypomania [Not Recovered/Not Resolved]
  - Intrusive thoughts [Not Recovered/Not Resolved]

NARRATIVE: CASE EVENT DATE: 20220101
